FAERS Safety Report 19068460 (Version 1)
Quarter: 2021Q1

REPORT INFORMATION
  Report Type: Spontaneous
  Country: FR (occurrence: FR)
  Receive Date: 20210329
  Receipt Date: 20210329
  Transmission Date: 20210420
  Serious: Yes (Other)
  Sender: FDA-Public Use
  Company Number: FR-OTSUKA-2021_010104

PATIENT
  Age: 38 Year
  Sex: Male

DRUGS (6)
  1. JINARC [Suspect]
     Active Substance: TOLVAPTAN
     Dosage: 60 MG
     Route: 048
     Dates: start: 201910
  2. JINARC [Suspect]
     Active Substance: TOLVAPTAN
     Indication: CONGENITAL CYSTIC KIDNEY DISEASE
     Dosage: 45 MG
     Route: 048
     Dates: start: 201904
  3. ENALAPRIL [Concomitant]
     Active Substance: ENALAPRIL
     Indication: PRODUCT USED FOR UNKNOWN INDICATION
     Dosage: 20 MG
     Route: 065
  4. JINARC [Suspect]
     Active Substance: TOLVAPTAN
     Dosage: 30 MG
     Route: 048
     Dates: start: 201910
  5. ADENURIC [Concomitant]
     Active Substance: FEBUXOSTAT
     Indication: PRODUCT USED FOR UNKNOWN INDICATION
     Dosage: 40 MG
     Route: 065
  6. JINARC [Suspect]
     Active Substance: TOLVAPTAN
     Dosage: 15 MG
     Route: 048
     Dates: start: 201904

REACTIONS (1)
  - Optic neuritis [Not Recovered/Not Resolved]

NARRATIVE: CASE EVENT DATE: 202011
